FAERS Safety Report 4991405-9 (Version None)
Quarter: 2006Q2

REPORT INFORMATION
  Report Type: 
  Country: None (occurrence: None)
  Receive Date: 20060501
  Receipt Date: 20060414
  Transmission Date: 20061013
  Serious: Yes (Other)
  Sender: FDA-Public Use
  Company Number: 200610388BFR

PATIENT
  Sex: Male

DRUGS (4)
  1. ADALAT [Suspect]
     Indication: THREATENED LABOUR
     Dosage: 20 MG, QID, TRANSPLACENTAL
     Route: 064
  2. AUGMENTIN '125' [Concomitant]
  3. SALBUTAMOL [Concomitant]
  4. NEXIUM [Concomitant]

REACTIONS (4)
  - BRADYCARDIA NEONATAL [None]
  - CAESAREAN SECTION [None]
  - DRUG EXPOSURE DURING PREGNANCY [None]
  - TWIN PREGNANCY [None]
